FAERS Safety Report 25215979 (Version 3)
Quarter: 2025Q2

REPORT INFORMATION
  Report Type: Report from Study
  Country: CA (occurrence: CA)
  Receive Date: 20250418
  Receipt Date: 20250523
  Transmission Date: 20250716
  Serious: Yes (Other)
  Sender: ROCHE
  Company Number: CA-ROCHE-10000256614

PATIENT
  Age: 62 Year
  Sex: Female
  Weight: 59 kg

DRUGS (6)
  1. ACTEMRA [Suspect]
     Active Substance: TOCILIZUMAB
     Indication: Rheumatoid arthritis
     Route: 042
     Dates: start: 20250402
  2. ACTEMRA [Suspect]
     Active Substance: TOCILIZUMAB
     Route: 042
  3. PREDNISONE [Concomitant]
     Active Substance: PREDNISONE
     Route: 048
  4. VENOFER [Concomitant]
     Active Substance: IRON SUCROSE
     Route: 042
  5. TYLENOL [Concomitant]
     Active Substance: ACETAMINOPHEN
     Route: 048
  6. SYNTHROID [Concomitant]
     Active Substance: LEVOTHYROXINE SODIUM
     Route: 048

REACTIONS (1)
  - Arthropathy [Recovered/Resolved]

NARRATIVE: CASE EVENT DATE: 20250430
